FAERS Safety Report 7937498-8 (Version None)
Quarter: 2011Q4

REPORT INFORMATION
  Report Type: 
  Country: None (occurrence: None)
  Receive Date: 20111123
  Receipt Date: 20111118
  Transmission Date: 20120403
  Serious: Yes (Hospitalization)
  Sender: FDA-Public Use
  Company Number: US-TEVA-309895USA

PATIENT
  Age: 78 Year
  Sex: Female

DRUGS (9)
  1. OXYCODONE HCL [Concomitant]
  2. PROCHLORPERAZINE [Concomitant]
  3. METOCLOPRAMIDE [Concomitant]
  4. CETUXIMAB [Suspect]
     Indication: ANAL CANCER
     Dates: start: 20111003, end: 20111017
  5. CISPLATIN [Suspect]
     Indication: ANAL CANCER
     Dates: start: 20111010, end: 20111010
  6. ONDANSETRON [Concomitant]
  7. MIRTAZAPINE [Concomitant]
  8. FLUOROURACIL [Suspect]
     Indication: ANAL CANCER
     Dates: start: 20111010, end: 20111014
  9. LOPERAMIDE HCL [Concomitant]

REACTIONS (3)
  - RENAL FAILURE ACUTE [None]
  - DECREASED APPETITE [None]
  - DEHYDRATION [None]
